FAERS Safety Report 10547788 (Version 1)
Quarter: 2014Q4

REPORT INFORMATION
  Report Type: Spontaneous
  Country: US (occurrence: None)
  Receive Date: 20141027
  Receipt Date: 20141027
  Transmission Date: 20150529
  Serious: No
  Sender: FDA-Public Use
  Company Number: None

PATIENT
  Age: 63 Year
  Sex: Male
  Weight: 136.08 kg

DRUGS (1)
  1. TAMSULOSIN [Suspect]
     Active Substance: TAMSULOSIN
     Indication: NOCTURIA
     Route: 048
     Dates: start: 20141001, end: 20141013

REACTIONS (4)
  - Erectile dysfunction [None]
  - Drug effect decreased [None]
  - Ejaculation disorder [None]
  - Sexual dysfunction [None]

NARRATIVE: CASE EVENT DATE: 20141001
